FAERS Safety Report 21879605 (Version 1)
Quarter: 2023Q1

REPORT INFORMATION
  Report Type: Spontaneous
  Country: US (occurrence: US)
  Receive Date: 20230118
  Receipt Date: 20230118
  Transmission Date: 20230418
  Serious: Yes (Other)
  Sender: FDA-Public Use
  Company Number: US-BRISTOL-MYERS SQUIBB COMPANY-2023-006783

PATIENT
  Age: 82 Year
  Sex: Female
  Weight: 58.51 kg

DRUGS (5)
  1. REVLIMID [Suspect]
     Active Substance: LENALIDOMIDE
     Indication: Myelodysplastic syndrome
     Dosage: DOSE : 2.5 MG;     FREQ : DAILY FOR 21 DAYS AND OFF FOR 7 DAYS
  2. REVLIMID [Suspect]
     Active Substance: LENALIDOMIDE
     Dosage: DOSE : 2.5 MG;     FREQ : DAILY FOR 21 DAYS AND OFF FOR 7 DAYS
  3. REVLIMID [Suspect]
     Active Substance: LENALIDOMIDE
     Dosage: DOSE : 2.5 MG;     FREQ : DAILY FOR 21 DAYS AND OFF FOR 7 DAYS
     Route: 048
  4. DIAZEPAM [Concomitant]
     Active Substance: DIAZEPAM
     Indication: Product used for unknown indication
     Dosage: PRN
  5. TAMSULOSIN [Concomitant]
     Active Substance: TAMSULOSIN
     Indication: Product used for unknown indication
     Dosage: 0.4 MG 4 X WEEK

REACTIONS (9)
  - Muscle spasms [Unknown]
  - Seizure [Unknown]
  - Back pain [Unknown]
  - Arthralgia [Unknown]
  - Dizziness [Unknown]
  - Dyspnoea [Unknown]
  - Headache [Unknown]
  - Contusion [Unknown]
  - White blood cell count decreased [Unknown]

NARRATIVE: CASE EVENT DATE: 20221228
